FAERS Safety Report 5940648-6 (Version None)
Quarter: 2008Q4

REPORT INFORMATION
  Report Type: 
  Country: None (occurrence: None)
  Receive Date: 20081030
  Receipt Date: 20081022
  Transmission Date: 20090506
  Serious: Yes (Other)
  Sender: FDA-Public Use
  Company Number: GXKR2008GB10107

PATIENT
  Age: 56 Year
  Sex: Female

DRUGS (2)
  1. TRIMETHOPRIM [Suspect]
     Indication: URINARY TRACT INFECTION
     Dosage: 200 MG, 3 DOSES IN TOTAL, ORAL
     Route: 048
     Dates: start: 20080923, end: 20080924
  2. VAGIFEM [Concomitant]

REACTIONS (3)
  - CONFUSIONAL STATE [None]
  - HEPATIC FUNCTION ABNORMAL [None]
  - HEPATITIS [None]
